FAERS Safety Report 9245029 (Version 3)
Quarter: 2014Q2

REPORT INFORMATION
  Report Type: Spontaneous
  Country: CN (occurrence: CN)
  Receive Date: 20130422
  Receipt Date: 20140514
  Transmission Date: 20141212
  Serious: Yes (Hospitalization, Other)
  Sender: FDA-Public Use
  Company Number: PHHY2013CN035300

PATIENT
  Age: 69 Year
  Sex: Female
  Weight: 55 kg

DRUGS (5)
  1. ACLASTA [Suspect]
     Indication: OSTEOPOROSIS POSTMENOPAUSAL
     Dosage: 5 MG, UNK
     Route: 042
     Dates: start: 20130402, end: 20130402
  2. SALINE [Concomitant]
     Indication: FLUID REPLACEMENT
     Dosage: 500 ML, IV PRIOR TO ACLASTA
     Route: 042
     Dates: start: 20130402, end: 20130402
  3. SALINE [Concomitant]
     Dosage: 100 ML, IV AFTER ACLASTA
     Route: 042
     Dates: start: 20130402, end: 20130402
  4. CALCIUM [Concomitant]
     Route: 048
     Dates: start: 20130402, end: 20130402
  5. VITAMIN D [Concomitant]
     Route: 048
     Dates: start: 20140402, end: 20140402

REACTIONS (15)
  - Infection [Recovered/Resolved]
  - Pyrexia [Recovered/Resolved]
  - Influenza like illness [Recovered/Resolved]
  - Chills [Recovered/Resolved]
  - C-reactive protein increased [Unknown]
  - Red blood cell sedimentation rate increased [Unknown]
  - Monocyte count increased [Unknown]
  - Red blood cell count decreased [Unknown]
  - Blood albumin decreased [Unknown]
  - Blood immunoglobulin A increased [Unknown]
  - Granulocyte count increased [Unknown]
  - Lymphocyte count decreased [Unknown]
  - Platelet count increased [Unknown]
  - Reticulocyte count increased [Unknown]
  - Haemoglobin decreased [Unknown]
